FAERS Safety Report 5124742-8 (Version None)
Quarter: 2006Q4

REPORT INFORMATION
  Report Type: 
  Country: None (occurrence: None)
  Receive Date: 20061006
  Receipt Date: 20061006
  Transmission Date: 20070319
  Serious: Yes (Life-Threatening)
  Sender: FDA-Public Use
  Company Number: None

PATIENT
  Sex: Female
  Weight: 97.0698 kg

DRUGS (1)
  1. FILGRASTIM 1740 MCG QD (NEUPOGEN) [Suspect]
     Indication: HAEMATOPOIETIC STEM CELL MOBILISATION
     Dosage: 1740 MCG QD SQ
     Route: 058
     Dates: start: 20060916, end: 20060920

REACTIONS (3)
  - POST PROCEDURAL COMPLICATION [None]
  - SPLENIC RUPTURE [None]
  - WHITE BLOOD CELL COUNT INCREASED [None]
